FAERS Safety Report 7012035-3 (Version None)
Quarter: 2010Q3

REPORT INFORMATION
  Report Type: 
  Country: None (occurrence: None)
  Receive Date: 20100924
  Receipt Date: 20100915
  Transmission Date: 20110219
  Serious: Yes (Death, Hospitalization)
  Sender: FDA-Public Use
  Company Number: JP-EISAI INC.-E3810-04084-SPO-JP

PATIENT
  Age: 82 Year
  Sex: Male

DRUGS (15)
  1. PARIET (RABEPRAZOLE) [Suspect]
     Indication: GASTRIC ULCER HAEMORRHAGE
     Route: 048
     Dates: start: 20100819, end: 20100831
  2. CALONAL [Concomitant]
     Indication: PYREXIA
     Dates: start: 20100829
  3. LYRICA [Concomitant]
     Indication: RHEUMATOID ARTHRITIS
     Route: 048
     Dates: start: 20100806, end: 20100831
  4. VOLTAREN [Concomitant]
  5. FLOMOX [Concomitant]
  6. ALPROSTADIL ALFADEX [Concomitant]
  7. GENTAMICIN SULFATE [Concomitant]
  8. PREDONINE [Concomitant]
     Indication: TRIGEMINAL PALSY
     Route: 048
     Dates: start: 20100819, end: 20100825
  9. PREDONINE [Concomitant]
     Indication: RHEUMATOID ARTHRITIS
     Route: 048
     Dates: start: 20100804, end: 20100818
  10. PREDONINE [Concomitant]
     Route: 048
     Dates: start: 20100728, end: 20100803
  11. PREDONINE [Concomitant]
     Route: 048
     Dates: start: 20100724, end: 20100727
  12. PREDONINE [Concomitant]
     Route: 048
     Dates: start: 20100721, end: 20100723
  13. AMBROXOL HYDROCHLORIDE [Concomitant]
  14. RINDERON [Concomitant]
     Indication: RHEUMATOID ARTHRITIS
     Route: 048
     Dates: start: 20100829, end: 20100831
  15. RHEUMATREX [Concomitant]
     Indication: RHEUMATOID ARTHRITIS
     Dates: end: 20100831

REACTIONS (4)
  - ANAEMIA [None]
  - DEATH [None]
  - LEUKOPENIA [None]
  - THROMBOCYTOPENIA [None]
